FAERS Safety Report 22867246 (Version 6)
Quarter: 2024Q1

REPORT INFORMATION
  Report Type: Spontaneous
  Country: US (occurrence: US)
  Receive Date: 20230825
  Receipt Date: 20240122
  Transmission Date: 20240409
  Serious: No
  Sender: FDA-Public Use
  Company Number: US-PFIZER INC-202300280150

PATIENT
  Age: 15 Year
  Sex: Male
  Weight: 45.7 kg

DRUGS (3)
  1. GENOTROPIN [Suspect]
     Active Substance: SOMATROPIN
     Indication: Growth disorder
     Dosage: 1.4 MG, 1X/DAY
     Route: 058
     Dates: end: 20230816
  2. GENOTROPIN [Suspect]
     Active Substance: SOMATROPIN
     Indication: Floating-Harbor syndrome
     Dosage: 1.6 MG, DAILY
  3. ANASTROZOLE [Concomitant]
     Active Substance: ANASTROZOLE
     Indication: Floating-Harbor syndrome
     Dosage: UNK, 1X/DAY

REACTIONS (4)
  - Drug dose omission by device [Unknown]
  - Wrong technique in device usage process [Unknown]
  - Device breakage [Unknown]
  - Device mechanical issue [Unknown]

NARRATIVE: CASE EVENT DATE: 20230817
